FAERS Safety Report 4567456-5 (Version None)
Quarter: 2005Q1

REPORT INFORMATION
  Report Type: 
  Country: None (occurrence: None)
  Receive Date: 20050127
  Receipt Date: 20050114
  Transmission Date: 20050727
  Serious: Yes (Death, Other)
  Sender: FDA-Public Use
  Company Number: 2004104327

PATIENT
  Age: 63 Year
  Sex: Male

DRUGS (3)
  1. ATARAX [Suspect]
     Indication: ABDOMINAL PAIN
     Dosage: ^1 AMPLE^, INTRAMUSCULAR
     Route: 030
     Dates: start: 20041201, end: 20041201
  2. HYOSCINE HBR HYT [Suspect]
     Indication: ABDOMINAL PAIN
     Dosage: ^2 AMPLE^, INTRAMUSCULAR
     Route: 030
     Dates: start: 20041201, end: 20041201
  3. ETHANOL (ETHANOL) [Suspect]
     Indication: ILL-DEFINED DISORDER

REACTIONS (18)
  - ABDOMINAL PAIN [None]
  - ALCOHOLISM [None]
  - ASPARTATE AMINOTRANSFERASE INCREASED [None]
  - BLOOD ALKALINE PHOSPHATASE INCREASED [None]
  - BLOOD CHLORIDE DECREASED [None]
  - BLOOD LACTATE DEHYDROGENASE INCREASED [None]
  - BLOOD POTASSIUM DECREASED [None]
  - BLOOD SODIUM DECREASED [None]
  - CARDIO-RESPIRATORY ARREST [None]
  - DRUG EFFECT DECREASED [None]
  - EXTRASYSTOLES [None]
  - HAEMOGLOBIN DECREASED [None]
  - LOSS OF CONSCIOUSNESS [None]
  - ORAL INTAKE REDUCED [None]
  - PLATELET COUNT INCREASED [None]
  - RED BLOOD CELL COUNT DECREASED [None]
  - SHOCK [None]
  - THERAPY NON-RESPONDER [None]
